FAERS Safety Report 7622509-X (Version None)
Quarter: 2011Q3

REPORT INFORMATION
  Report Type: 
  Country: None (occurrence: None)
  Receive Date: 20110712
  Receipt Date: 20110706
  Transmission Date: 20111222
  Serious: Yes (Death)
  Sender: FDA-Public Use
  Company Number: 2011SP031197

PATIENT
  Age: 70 Year
  Sex: Male

DRUGS (5)
  1. PEG-INTRON [Suspect]
     Indication: HEPATITIS C
     Dosage: 0.34 MCG/KG;QW 0.27 MCG/KG;QW 0.34 MCG/KG;QW
     Dates: start: 20110401, end: 20110528
  2. PEG-INTRON [Suspect]
     Indication: HEPATITIS C
     Dosage: 0.34 MCG/KG;QW 0.27 MCG/KG;QW 0.34 MCG/KG;QW
     Dates: start: 20101203, end: 20110401
  3. PEG-INTRON [Suspect]
     Indication: HEPATITIS C
     Dosage: 0.34 MCG/KG;QW 0.27 MCG/KG;QW 0.34 MCG/KG;QW
     Dates: start: 20101015, end: 20101203
  4. EPO [Concomitant]
  5. RIBAVIRIN [Suspect]
     Indication: PRODUCT USED FOR UNKNOWN INDICATION

REACTIONS (1)
  - SEPSIS [None]
